FAERS Safety Report 9504430 (Version 2)
Quarter: 2013Q3

REPORT INFORMATION
  Report Type: Spontaneous
  Country: AT (occurrence: AT)
  Receive Date: 20130906
  Receipt Date: 20130917
  Transmission Date: 20140515
  Serious: Yes (Other)
  Sender: FDA-Public Use
  Company Number: AT-JNJFOC-20130900975

PATIENT
  Age: 16 Year
  Sex: Female

DRUGS (4)
  1. REMICADE [Suspect]
     Indication: CROHN^S DISEASE
     Route: 042
     Dates: start: 201103
  2. METHOTREXATE [Suspect]
     Indication: CROHN^S DISEASE
     Route: 065
     Dates: end: 201109
  3. ADALIMUMAB [Suspect]
     Indication: CROHN^S DISEASE
     Route: 065
     Dates: start: 201108, end: 201111
  4. CYCLOSPORIN A [Suspect]
     Indication: PRODUCT USED FOR UNKNOWN INDICATION
     Route: 065
     Dates: start: 201110

REACTIONS (6)
  - Cholangitis sclerosing [Not Recovered/Not Resolved]
  - Colitis [Not Recovered/Not Resolved]
  - Gastroenteritis [Unknown]
  - Diarrhoea haemorrhagic [Not Recovered/Not Resolved]
  - Treatment failure [Unknown]
  - Arthralgia [Unknown]
